FAERS Safety Report 11460807 (Version 2)
Quarter: 2015Q4

REPORT INFORMATION
  Report Type: Report from Study
  Country: JP (occurrence: JP)
  Receive Date: 20150904
  Receipt Date: 20151021
  Transmission Date: 20160304
  Serious: Yes (Other)
  Sender: FDA-Public Use
  Company Number: JP-SPECTRUM PHARMACEUTICALS, INC.-15-Z-JP-00373

PATIENT
  Age: 60 Year
  Sex: Female

DRUGS (4)
  1. ZEVALIN [Suspect]
     Active Substance: IBRITUMOMAB TIUXETAN
     Dosage: 130 MBQ, SINGLE
     Route: 042
     Dates: start: 20100216, end: 20100216
  2. RITUXIMAB [Suspect]
     Active Substance: RITUXIMAB
     Indication: FOLLICLE CENTRE LYMPHOMA, FOLLICULAR GRADE I, II, III
     Dosage: 250 MG/M2, SINGLE
     Route: 042
     Dates: start: 20100224, end: 20100224
  3. ZEVALIN [Suspect]
     Active Substance: IBRITUMOMAB TIUXETAN
     Indication: FOLLICLE CENTRE LYMPHOMA, FOLLICULAR GRADE I, II, III
     Dosage: 725 MBQ, SINGLE
     Route: 042
     Dates: start: 20100224, end: 20100224
  4. RITUXIMAB [Suspect]
     Active Substance: RITUXIMAB
     Dosage: 250 MG/M2, SINGLE
     Route: 042
     Dates: start: 20100216, end: 20100216

REACTIONS (1)
  - Essential thrombocythaemia [Not Recovered/Not Resolved]

NARRATIVE: CASE EVENT DATE: 20150416
